FAERS Safety Report 23862522 (Version 3)
Quarter: 2024Q2

REPORT INFORMATION
  Report Type: Spontaneous
  Country: US (occurrence: US)
  Receive Date: 20240516
  Receipt Date: 20240604
  Transmission Date: 20240715
  Serious: No
  Sender: FDA-Public Use
  Company Number: US-PFIZER INC-PV202400063479

PATIENT
  Age: 77 Year
  Sex: Male

DRUGS (1)
  1. TALZENNA [Suspect]
     Active Substance: TALAZOPARIB TOSYLATE
     Indication: Hormone-refractory prostate cancer
     Dosage: 0.5 MG, 1X/DAY (1 CAPSULE BY MOUTH ONCE DAILY)
     Route: 048
     Dates: start: 20240516

REACTIONS (1)
  - Neoplasm progression [Unknown]
